FAERS Safety Report 24461760 (Version 1)
Quarter: 2024Q4

REPORT INFORMATION
  Report Type: Report from Study
  Country: JP (occurrence: JP)
  Receive Date: 20241018
  Receipt Date: 20241018
  Transmission Date: 20250114
  Serious: No
  Sender: ROCHE
  Company Number: JP-ROCHE-3545153

PATIENT
  Age: 30 Year
  Sex: Female
  Weight: 55.0 kg

DRUGS (3)
  1. RITUXAN [Suspect]
     Active Substance: RITUXIMAB
     Indication: Systemic scleroderma
     Dosage: SUBSEQUENT DOSE DATES- 24/FEB/2023, 03/MAR/2023, 10/MAR/2023, 18/AUG/2023, 25/AUG/2023.
     Route: 041
     Dates: start: 20230216, end: 20230216
  2. AZATHIOPRINE [Concomitant]
     Active Substance: AZATHIOPRINE
     Indication: Systemic scleroderma
     Route: 048
     Dates: start: 20230330
  3. RABEPRAZOLE SODIUM [Concomitant]
     Active Substance: RABEPRAZOLE SODIUM
     Route: 048
     Dates: start: 20230330

REACTIONS (1)
  - Red blood cell count decreased [Recovered/Resolved]

NARRATIVE: CASE EVENT DATE: 20230818
